FAERS Safety Report 15535174 (Version 2)
Quarter: 2018Q4

REPORT INFORMATION
  Report Type: Spontaneous
  Country: US (occurrence: US)
  Receive Date: 20181022
  Receipt Date: 20181213
  Transmission Date: 20190205
  Serious: No
  Sender: FDA-Public Use
  Company Number: US-LEO PHARMA-314242

PATIENT
  Age: 69 Year
  Sex: Female

DRUGS (3)
  1. HYDROCHLOROTHIAZIDE. [Concomitant]
     Active Substance: HYDROCHLOROTHIAZIDE
     Indication: PRODUCT USED FOR UNKNOWN INDICATION
     Dosage: RESTARTED ON UNKNOWN DATE
  2. DAIVOBET [Suspect]
     Active Substance: BETAMETHASONE DIPROPIONATE\CALCIPOTRIENE
     Indication: PRODUCT USED FOR UNKNOWN INDICATION
     Dosage: 3 TIMES A WEEK, ON SCALP, USED FOR A LITTLE OVER A YEAR?DRUG WAS STOPPED AND REINTRODUCED ON UNKNOWN
     Route: 061
  3. DAIVOBET [Suspect]
     Active Substance: BETAMETHASONE DIPROPIONATE\CALCIPOTRIENE
     Dosage: ONCE A WEEK APPLY FOR 2-3 HOURS TEN WASH OFF SCALP

REACTIONS (2)
  - Blood potassium increased [Recovered/Resolved]
  - Inappropriate schedule of product administration [Unknown]
